FAERS Safety Report 13969317 (Version 1)
Quarter: 2017Q3

REPORT INFORMATION
  Report Type: Spontaneous
  Country: US (occurrence: US)
  Receive Date: 20170914
  Receipt Date: 20170914
  Transmission Date: 20171128
  Serious: Yes (Other)
  Sender: FDA-Public Use
  Company Number: US-SAOL THERAPEUTICS-2017SAO01442

PATIENT
  Sex: Female

DRUGS (9)
  1. BACLOFEN. [Suspect]
     Active Substance: BACLOFEN
     Indication: PAIN
     Dosage: 60.01 ?G, \DAY
     Route: 037
  2. BUPIVACAINE. [Suspect]
     Active Substance: BUPIVACAINE
     Dosage: UNK UNK, \DAY
     Route: 037
  3. BACLOFEN. [Suspect]
     Active Substance: BACLOFEN
     Indication: POST LAMINECTOMY SYNDROME
  4. MORPHINE [Suspect]
     Active Substance: MORPHINE
     Dosage: UNK UNK, \DAY
     Route: 037
  5. MORPHINE [Suspect]
     Active Substance: MORPHINE
     Dosage: 9.002 MG, \DAY
     Route: 037
  6. LIORESAL [Suspect]
     Active Substance: BACLOFEN
     Indication: MUSCLE SPASTICITY
     Dosage: UNK UNK, \DAY
     Route: 037
  7. FENTANYL. [Suspect]
     Active Substance: FENTANYL
     Dosage: 75.02 ?G, \DAY
     Route: 037
  8. BUPIVACAINE. [Suspect]
     Active Substance: BUPIVACAINE
     Dosage: 6.001 MG, \DAY
     Route: 037
  9. FENTANYL. [Suspect]
     Active Substance: FENTANYL
     Dosage: UNK UNK, \DAY
     Route: 037

REACTIONS (11)
  - Vomiting [Recovered/Resolved]
  - Pain [Recovered/Resolved]
  - Device battery issue [Unknown]
  - Implant site pain [Recovered/Resolved]
  - Nausea [Recovered/Resolved]
  - Overdose [Recovered/Resolved]
  - Device occlusion [Recovered/Resolved]
  - Drug withdrawal syndrome [Recovered/Resolved]
  - Complication associated with device [Recovered/Resolved]
  - Off label use [Not Recovered/Not Resolved]
  - Therapy non-responder [Recovered/Resolved]

NARRATIVE: CASE EVENT DATE: 2011
